FAERS Safety Report 5274126-7 (Version None)
Quarter: 2007Q1

REPORT INFORMATION
  Report Type: 
  Country: None (occurrence: None)
  Receive Date: 20070323
  Receipt Date: 20070312
  Transmission Date: 20070707
  Serious: Yes (Other)
  Sender: FDA-Public Use
  Company Number: PHHO2007US04708

PATIENT
  Age: 65 Year
  Sex: Male
  Weight: 90 kg

DRUGS (8)
  1. LOTREL [Suspect]
     Indication: HYPERTENSION
     Dosage: UNK, LEVEL 1
     Route: 048
     Dates: start: 20050310
  2. LOTREL [Suspect]
     Dosage: OFF STUDY DRUG
     Dates: start: 20060418, end: 20060523
  3. LOTREL [Suspect]
     Dosage: LEVEL 3
     Route: 048
     Dates: start: 20060524, end: 20070312
  4. MINIPRESS [Concomitant]
     Indication: HYPERTENSION
     Dosage: 5 MG, BID
     Route: 048
     Dates: start: 20060116
  5. HYDROCHLOROTHIAZIDE [Suspect]
     Dosage: UNKNOWN
     Dates: start: 20060105, end: 20060306
  6. GLUCOTROL XL [Concomitant]
     Indication: DIABETES MELLITUS NON-INSULIN-DEPENDENT
     Route: 048
     Dates: start: 19970101
  7. METFORMIN HYDROCHLORIDE [Concomitant]
     Indication: DIABETES MELLITUS NON-INSULIN-DEPENDENT
     Dosage: 850 UNK, BID
     Route: 048
     Dates: start: 19970101
  8. ATENOLOL [Concomitant]
     Indication: HYPERTENSION
     Dates: start: 20051212

REACTIONS (3)
  - BLOOD CREATININE INCREASED [None]
  - SLEEP APNOEA SYNDROME [None]
  - URINE ALBUMIN/CREATININE RATIO INCREASED [None]
